FAERS Safety Report 16277142 (Version 1)
Quarter: 2019Q2

REPORT INFORMATION
  Report Type: Other
  Country: ES (occurrence: ES)
  Receive Date: 20190506
  Receipt Date: 20190506
  Transmission Date: 20190711
  Serious: Yes (Death, Hospitalization, Other)
  Sender: FDA-Public Use
  Company Number: ES-APOTEX-2019AP013243

PATIENT
  Age: 89 Year
  Sex: Female

DRUGS (2)
  1. CITALOPRAM [Suspect]
     Active Substance: CITALOPRAM HYDROBROMIDE
     Indication: PRODUCT USED FOR UNKNOWN INDICATION
     Dosage: 20 MG, Q.AM
     Route: 048
     Dates: start: 20170430, end: 20180426
  2. METAMIZOL                          /06276701/ [Interacting]
     Active Substance: METAMIZOLE
     Indication: PRODUCT USED FOR UNKNOWN INDICATION
     Dosage: 575 MG, TID (EVERY 8 HOURS)
     Route: 048
     Dates: start: 20170430, end: 20180426

REACTIONS (3)
  - Gastrointestinal haemorrhage [Fatal]
  - Concomitant disease aggravated [Fatal]
  - Anaemia [Fatal]

NARRATIVE: CASE EVENT DATE: 20180426
